FAERS Safety Report 23553052 (Version 3)
Quarter: 2024Q2

REPORT INFORMATION
  Report Type: Spontaneous
  Country: JP (occurrence: JP)
  Receive Date: 20240222
  Receipt Date: 20240404
  Transmission Date: 20240716
  Serious: Yes (Death, Hospitalization, Other)
  Sender: FDA-Public Use
  Company Number: JP-DSJP-DSJ-2024-106321

PATIENT
  Age: 72 Year
  Sex: Female
  Weight: 59.6 kg

DRUGS (3)
  1. ENHERTU [Suspect]
     Active Substance: FAM-TRASTUZUMAB DERUXTECAN-NXKI
     Indication: HER2 low breast cancer
     Dosage: 5.4 MG/KG, SINGLE
     Route: 041
     Dates: start: 20240116, end: 20240116
  2. DENOSUMAB [Concomitant]
     Active Substance: DENOSUMAB
     Indication: Monoplegia
     Dosage: 120 MG, QD
     Route: 058
     Dates: start: 20240115
  3. DENOSUMAB [Concomitant]
     Active Substance: DENOSUMAB
     Indication: Metastases to bone

REACTIONS (4)
  - Disease progression [Fatal]
  - Pulmonary embolism [Fatal]
  - Nausea [Recovering/Resolving]
  - Decreased appetite [Recovering/Resolving]

NARRATIVE: CASE EVENT DATE: 20240119
